FAERS Safety Report 25808719 (Version 2)
Quarter: 2025Q3

REPORT INFORMATION
  Report Type: Spontaneous
  Country: RU (occurrence: RU)
  Receive Date: 20250916
  Receipt Date: 20250924
  Transmission Date: 20251020
  Serious: Yes (Other)
  Sender: VERITY PHARMACEUTICALS INC.
  Company Number: RU-VER-202500010

PATIENT
  Age: 70 Year
  Sex: Male

DRUGS (12)
  1. TRIPTORELIN PAMOATE [Suspect]
     Active Substance: TRIPTORELIN PAMOATE
     Indication: Metastases to bone
     Route: 030
     Dates: start: 20220630, end: 20221014
  2. TRIPTORELIN PAMOATE [Suspect]
     Active Substance: TRIPTORELIN PAMOATE
     Indication: Metastases to lung
     Route: 030
     Dates: start: 20220630, end: 20221014
  3. TRIPTORELIN PAMOATE [Suspect]
     Active Substance: TRIPTORELIN PAMOATE
     Indication: Prostate cancer
     Route: 030
     Dates: start: 20220630, end: 20221014
  4. TRIPTORELIN PAMOATE [Suspect]
     Active Substance: TRIPTORELIN PAMOATE
     Indication: Metastases to bone
     Route: 030
     Dates: start: 20221122
  5. TRIPTORELIN PAMOATE [Suspect]
     Active Substance: TRIPTORELIN PAMOATE
     Indication: Metastases to lung
     Route: 030
     Dates: start: 20221122
  6. TRIPTORELIN PAMOATE [Suspect]
     Active Substance: TRIPTORELIN PAMOATE
     Indication: Prostate cancer
     Route: 030
     Dates: start: 20221122
  7. DOCETAXEL [Suspect]
     Active Substance: DOCETAXEL
     Indication: Metastases to bone
     Route: 041
     Dates: start: 20220630, end: 20221014
  8. DOCETAXEL [Suspect]
     Active Substance: DOCETAXEL
     Indication: Metastases to lung
     Route: 041
     Dates: start: 20220630, end: 20221014
  9. DOCETAXEL [Suspect]
     Active Substance: DOCETAXEL
     Indication: Prostate cancer
     Route: 041
     Dates: start: 20220630, end: 20221014
  10. ENZALUTAMIDE [Suspect]
     Active Substance: ENZALUTAMIDE
     Indication: Metastases to bone
     Dosage: STRENGTH: 40 MILLIGRAM
     Route: 048
     Dates: start: 20221122
  11. ENZALUTAMIDE [Suspect]
     Active Substance: ENZALUTAMIDE
     Indication: Metastases to lung
     Dosage: STRENGTH: 40 MILLIGRAM
     Route: 048
     Dates: start: 20221122
  12. ENZALUTAMIDE [Suspect]
     Active Substance: ENZALUTAMIDE
     Indication: Prostate cancer
     Dosage: STRENGTH: 40 MILLIGRAM
     Route: 048
     Dates: start: 20221122

REACTIONS (3)
  - Hot flush [Unknown]
  - Blood pressure increased [Unknown]
  - Pathological fracture [Unknown]

NARRATIVE: CASE EVENT DATE: 20250804
